FAERS Safety Report 16103070 (Version 4)
Quarter: 2019Q2

REPORT INFORMATION
  Report Type: Spontaneous
  Country: US (occurrence: US)
  Receive Date: 20190322
  Receipt Date: 20190424
  Transmission Date: 20190711
  Serious: Yes (Hospitalization)
  Sender: FDA-Public Use
  Company Number: US-BIOGEN-2019BI00709315

PATIENT
  Age: 1 Year
  Sex: Male

DRUGS (3)
  1. SPINRAZA [Suspect]
     Active Substance: NUSINERSEN
     Dosage: 4TH LOADING DOSE
     Route: 065
     Dates: end: 20181207
  2. SPINRAZA [Suspect]
     Active Substance: NUSINERSEN
     Indication: SPINAL MUSCULAR ATROPHY
     Dosage: FIRST 3 LD EVERY 14 DAYS; 4TH LD ONCE AFTER 30 DAYS. MAINTENANCE DOSES: ONCE EVERY 4 MONTHS.
     Route: 065
     Dates: start: 20180913, end: 20181207
  3. SPINRAZA [Suspect]
     Active Substance: NUSINERSEN
     Dosage: FIRST 3 LOADING DOSE
     Route: 065
     Dates: end: 20181207

REACTIONS (3)
  - Pneumonia viral [Unknown]
  - Respiratory tract infection [Not Recovered/Not Resolved]
  - Pneumothorax [Unknown]

NARRATIVE: CASE EVENT DATE: 20190319
